FAERS Safety Report 18563427 (Version 1)
Quarter: 2020Q4

REPORT INFORMATION
  Report Type: Spontaneous
  Country: US (occurrence: US)
  Receive Date: 20201201
  Receipt Date: 20201201
  Transmission Date: 20210114
  Serious: Yes (Disabling, Other)
  Sender: FDA-Public Use
  Company Number: US-SA-2020SA337981

PATIENT

DRUGS (2)
  1. GOLD BOND ORIGINAL STRENGTH POWDER [Suspect]
     Active Substance: MENTHOL\ZINC OXIDE
     Dosage: UNK
     Dates: start: 1990, end: 2019
  2. GOLD BOND ORIGINAL STRENGTH POWDER [Suspect]
     Active Substance: MENTHOL\ZINC OXIDE
     Dosage: UNK
     Dates: start: 1982, end: 1986

REACTIONS (6)
  - Pain [Unknown]
  - Mesothelioma malignant [Unknown]
  - Exposure to chemical pollution [Unknown]
  - Anxiety [Unknown]
  - Disability [Unknown]
  - Injury [Unknown]

NARRATIVE: CASE EVENT DATE: 20190711
